FAERS Safety Report 7423223-6 (Version None)
Quarter: 2011Q2

REPORT INFORMATION
  Report Type: 
  Country: None (occurrence: None)
  Receive Date: 20110419
  Receipt Date: 20110415
  Transmission Date: 20111010
  Serious: Yes (Other)
  Sender: FDA-Public Use
  Company Number: US-PFIZER INC-2011023520

PATIENT
  Sex: Female
  Weight: 43.537 kg

DRUGS (2)
  1. LOSARTAN POTASSIUM [Concomitant]
     Indication: HYPERTENSION
     Dosage: 50 MG, 1X/DAY
  2. XALATAN [Suspect]
     Indication: GLAUCOMA
     Dosage: ONE DROP IN THE LEFT EYE
     Route: 047

REACTIONS (3)
  - GLAUCOMA [None]
  - CORNEAL DISORDER [None]
  - HERPES ZOSTER OPHTHALMIC [None]
